FAERS Safety Report 7554298-1 (Version None)
Quarter: 2011Q2

REPORT INFORMATION
  Report Type: 
  Country: None (occurrence: None)
  Receive Date: 20110617
  Receipt Date: 20110615
  Transmission Date: 20111010
  Serious: No
  Sender: FDA-Public Use
  Company Number: US-PFIZER INC-2011131329

PATIENT
  Sex: Female
  Weight: 49.89 kg

DRUGS (2)
  1. IBUPROFEN (ADVIL) [Suspect]
     Indication: HEADACHE
     Dosage: 400 MG, EVERY 4 HRS
     Dates: start: 20110601, end: 20110613
  2. ADVAIR DISKUS 100/50 [Concomitant]
     Indication: WHEEZING
     Dosage: UNK

REACTIONS (1)
  - DRUG INEFFECTIVE [None]
